FAERS Safety Report 17509416 (Version 1)
Quarter: 2020Q1

REPORT INFORMATION
  Report Type: Spontaneous
  Country: US (occurrence: US)
  Receive Date: 20200226
  Receipt Date: 20200226
  Transmission Date: 20200409
  Serious: Yes (Hospitalization)
  Sender: FDA-Public Use
  Company Number: None

PATIENT
  Sex: Female

DRUGS (5)
  1. GABAPENTIN. [Concomitant]
     Active Substance: GABAPENTIN
  2. ATORVASTATIN [Concomitant]
     Active Substance: ATORVASTATIN
  3. ESTRADIOL. [Concomitant]
     Active Substance: ESTRADIOL
  4. HUMIRA [Suspect]
     Active Substance: ADALIMUMAB
     Indication: CROHN^S DISEASE
     Dosage: ?          OTHER FREQUENCY:Q2WKS ;?
     Route: 058
     Dates: start: 20170811
  5. GLATIRAMER 40MG SYR [Suspect]
     Active Substance: GLATIRAMER
     Dosage: ?          OTHER FREQUENCY:3XPER WEEK;?
     Route: 058
     Dates: start: 20190312

REACTIONS (1)
  - Injection site reaction [None]
